FAERS Safety Report 9917175 (Version 2)
Quarter: 2014Q1

REPORT INFORMATION
  Report Type: Spontaneous
  Country: US (occurrence: US)
  Receive Date: 20140221
  Receipt Date: 20140221
  Transmission Date: 20141002
  Serious: No
  Sender: FDA-Public Use
  Company Number: US-GILEAD-2012-0059076

PATIENT
  Age: 60 Year
  Sex: Female
  Weight: 75.28 kg

DRUGS (4)
  1. COMPLERA [Suspect]
     Indication: HIV INFECTION
     Dosage: 1 DF, QD
     Route: 048
     Dates: start: 20120411
  2. ZOVIRAX                            /00587301/ [Concomitant]
     Indication: HIV INFECTION
  3. VALTREX [Concomitant]
     Indication: HIV INFECTION
  4. NAPROSYN                           /00256201/ [Concomitant]

REACTIONS (1)
  - Skin hypopigmentation [Not Recovered/Not Resolved]
